FAERS Safety Report 5655964-5 (Version None)
Quarter: 2008Q1

REPORT INFORMATION
  Report Type: 
  Country: None (occurrence: None)
  Receive Date: 20080307
  Receipt Date: 20080222
  Transmission Date: 20080703
  Serious: Yes (Death)
  Sender: FDA-Public Use
  Company Number: CA-GENENTECH-252065

PATIENT
  Sex: Male

DRUGS (1)
  1. AVASTIN [Suspect]
     Indication: RECTAL CANCER
     Dosage: 671 MG, UNK
     Route: 042
     Dates: start: 20061001, end: 20080130

REACTIONS (1)
  - DISEASE PROGRESSION [None]
